FAERS Safety Report 8310461-3 (Version None)
Quarter: 2012Q2

REPORT INFORMATION
  Report Type: 
  Country: None (occurrence: None)
  Receive Date: 20120425
  Receipt Date: 20120423
  Transmission Date: 20120825
  Serious: Yes (Other)
  Sender: FDA-Public Use
  Company Number: US-BAYER-2012-032873

PATIENT
  Age: 53 Year
  Sex: Female
  Weight: 70.748 kg

DRUGS (6)
  1. SYNTHROID [Concomitant]
     Dosage: 0.088 MG, QD UPON WAKING UP
     Dates: start: 20090201
  2. VITAMIN B-12 [Concomitant]
     Dosage: 2000 ?G, QD
  3. BETASERON [Suspect]
     Dosage: 0.3 MG, UNK
  4. IRON [Concomitant]
     Dosage: 65 MG, QD
  5. AZOR [Concomitant]
     Indication: PRODUCT USED FOR UNKNOWN INDICATION
     Dosage: 10-20 MG, QD
     Dates: start: 20090601
  6. BETASERON [Suspect]
     Indication: MULTIPLE SCLEROSIS
     Dosage: 0.3 MG, QOD
     Route: 058
     Dates: start: 20110601

REACTIONS (1)
  - TENDONITIS [None]
